FAERS Safety Report 7416910-7 (Version None)
Quarter: 2011Q2

REPORT INFORMATION
  Report Type: 
  Country: None (occurrence: None)
  Receive Date: 20110415
  Receipt Date: 20110408
  Transmission Date: 20111010
  Serious: Yes (Other)
  Sender: FDA-Public Use
  Company Number: US-JNJFOC-20110205719

PATIENT
  Sex: Female
  Weight: 121.56 kg

DRUGS (11)
  1. FUROSEMIDE [Concomitant]
     Route: 048
  2. ROBAXIN [Concomitant]
     Indication: MUSCLE SPASMS
     Route: 065
  3. VITAMIN D2 [Concomitant]
     Route: 065
  4. OXYCONTIN [Concomitant]
     Route: 048
  5. NUCYNTA [Suspect]
     Indication: PAIN
     Route: 065
  6. EFFEXOR XR [Concomitant]
     Route: 048
  7. PEPCID [Concomitant]
     Route: 065
  8. NUCYNTA [Suspect]
     Route: 065
  9. OXYCODONE HYDROCHLORIDE [Concomitant]
     Indication: PAIN
     Route: 048
  10. WELLABUTRIN [Concomitant]
     Route: 048
  11. ZOVIRAX [Concomitant]
     Route: 065

REACTIONS (6)
  - SWOLLEN TONGUE [None]
  - DIPLOPIA [None]
  - CONFUSIONAL STATE [None]
  - PHARYNGEAL OEDEMA [None]
  - EYE SWELLING [None]
  - BALANCE DISORDER [None]
